FAERS Safety Report 13361528 (Version 2)
Quarter: 2017Q2

REPORT INFORMATION
  Report Type: Report from Study
  Country: None (occurrence: US)
  Receive Date: 20170323
  Receipt Date: 20170510
  Transmission Date: 20170830
  Serious: Yes (Hospitalization, Other)
  Sender: FDA-Public Use
  Company Number: US-ABBVIE-17K-163-1915347-00

PATIENT
  Sex: Male

DRUGS (1)
  1. HUMIRA [Suspect]
     Active Substance: ADALIMUMAB
     Indication: COLITIS ULCERATIVE
     Route: 058
     Dates: start: 20170222, end: 20170319

REACTIONS (2)
  - Crohn^s disease [Not Recovered/Not Resolved]
  - Drug ineffective [Recovering/Resolving]

NARRATIVE: CASE EVENT DATE: 2017
